FAERS Safety Report 8174644-8 (Version None)
Quarter: 2012Q1

REPORT INFORMATION
  Report Type: 
  Country: None (occurrence: None)
  Receive Date: 20120229
  Receipt Date: 20120221
  Transmission Date: 20120608
  Serious: Yes (Hospitalization)
  Sender: FDA-Public Use
  Company Number: US-JNJFOC-20111207999

PATIENT
  Sex: Male
  Weight: 108 kg

DRUGS (11)
  1. MESALAMINE [Concomitant]
     Route: 048
  2. CALCIUM CARBONATE [Concomitant]
  3. ACETAMINOPHEN [Concomitant]
  4. BIAXIN [Concomitant]
  5. VITAMIN D [Concomitant]
  6. MESALAMINE [Concomitant]
     Route: 054
  7. PREVACID [Concomitant]
  8. MUCINEX [Concomitant]
  9. ALBUTEROL [Concomitant]
  10. REMICADE [Suspect]
     Indication: CROHN'S DISEASE
     Route: 042
     Dates: start: 20110413
  11. PREDNISONE TAB [Concomitant]

REACTIONS (1)
  - ABDOMINAL PAIN [None]
